FAERS Safety Report 6143952-4 (Version None)
Quarter: 2009Q2

REPORT INFORMATION
  Report Type: 
  Country: None (occurrence: None)
  Receive Date: 20090406
  Receipt Date: 20090309
  Transmission Date: 20091009
  Serious: Yes (Other)
  Sender: FDA-Public Use
  Company Number: JAUSA25569

PATIENT
  Age: 29 Year
  Sex: Female

DRUGS (2)
  1. NIZORAL [Suspect]
     Indication: TINEA VERSICOLOUR
     Route: 048
     Dates: start: 19871101, end: 19871115
  2. CLINORIL [Suspect]
     Indication: DRUG USE FOR UNKNOWN INDICATION
     Route: 048

REACTIONS (2)
  - DRUG EXPOSURE DURING PREGNANCY [None]
  - INTRA-UTERINE DEATH [None]
